FAERS Safety Report 4824084-1 (Version None)
Quarter: 2005Q4

REPORT INFORMATION
  Report Type: 
  Country: None (occurrence: None)
  Receive Date: 20051108
  Receipt Date: 20051027
  Transmission Date: 20060501
  Serious: Yes (Hospitalization)
  Sender: FDA-Public Use
  Company Number: HQWYE276127OCT05

PATIENT
  Age: 74 Year
  Sex: Male

DRUGS (15)
  1. CORDARONE [Suspect]
     Indication: ATRIAL FIBRILLATION
     Dosage: SEE IMAGE, INTRAVENOUS
     Route: 042
  2. CHLOROTHIAZIDE [Concomitant]
  3. SPIRONOLACTONE [Concomitant]
  4. ALLOPURINOL [Concomitant]
  5. ATORVASTATIN CALCIUM [Concomitant]
  6. FLUTICASONE PROPIONATE [Concomitant]
  7. SALMETEROL (SALMETEROL) [Concomitant]
  8. CYTARABINE [Concomitant]
  9. IDARUBICIN HCL [Concomitant]
  10. VANCOMYCIN [Concomitant]
  11. TOBRAMYCIN [Concomitant]
  12. MEROPENEM (MEROPENEM) [Concomitant]
  13. SULFAMETHOXAZOLE + TRIMETHOPRIM [Concomitant]
  14. VORICONAZOLE (VORICONAZOLE) [Concomitant]
  15. DILTIAZEM [Concomitant]

REACTIONS (2)
  - CHRONIC OBSTRUCTIVE PULMONARY DISEASE [None]
  - CONDITION AGGRAVATED [None]
